FAERS Safety Report 5734719-7 (Version None)
Quarter: 2008Q2

REPORT INFORMATION
  Report Type: 
  Country: None (occurrence: None)
  Receive Date: 20080508
  Receipt Date: 20080508
  Transmission Date: 20081010
  Serious: No
  Sender: FDA-Public Use
  Company Number: None

PATIENT
  Age: 61 Year
  Sex: Female
  Weight: 64.4108 kg

DRUGS (1)
  1. CREST PRO HEALTH RINSE PROCTOR AND GAMBLE [Suspect]
     Dosage: 1 OZ  1X  PO
     Route: 048

REACTIONS (1)
  - TOOTH DISCOLOURATION [None]
